FAERS Safety Report 5286526-X (Version None)
Quarter: 2007Q2

REPORT INFORMATION
  Report Type: 
  Country: None (occurrence: None)
  Receive Date: 20070404
  Receipt Date: 20070329
  Transmission Date: 20071010
  Serious: Yes (Death, Life-Threatening)
  Sender: FDA-Public Use
  Company Number: IT-SANOFI-SYNTHELABO-A06200700155

PATIENT
  Sex: Female

DRUGS (3)
  1. LEUCOVORINE [Concomitant]
     Indication: COLON CANCER
     Dosage: UNK
     Route: 065
     Dates: start: 20051101, end: 20060501
  2. FLUOROURACIL [Concomitant]
     Indication: COLON CANCER
     Dosage: UNK
     Route: 041
     Dates: start: 20051101, end: 20060501
  3. ELOXATIN [Suspect]
     Indication: COLON CANCER
     Route: 041
     Dates: start: 20051101, end: 20060501

REACTIONS (1)
  - LYMPHOCYTIC LEUKAEMIA [None]
